FAERS Safety Report 24011076 (Version 1)
Quarter: 2024Q2

REPORT INFORMATION
  Report Type: Report from Study
  Country: US (occurrence: None)
  Receive Date: 20240625
  Receipt Date: 20240625
  Transmission Date: 20240716
  Serious: Yes (Other)
  Sender: FDA-Public Use
  Company Number: 2024A141612

PATIENT
  Sex: Male

DRUGS (2)
  1. CALQUENCE [Suspect]
     Active Substance: ACALABRUTINIB
     Indication: Chronic lymphocytic leukaemia
     Route: 048
     Dates: start: 202204
  2. FLUCONAZOLE [Suspect]
     Active Substance: FLUCONAZOLE

REACTIONS (4)
  - Pulmonary mass [Unknown]
  - Chordoma [Unknown]
  - Coccidioidomycosis [Unknown]
  - Labelled drug-drug interaction issue [Unknown]
